FAERS Safety Report 14312177 (Version 1)
Quarter: 2017Q4

REPORT INFORMATION
  Report Type: Spontaneous
  Country: FR (occurrence: FR)
  Receive Date: 20171221
  Receipt Date: 20171221
  Transmission Date: 20180321
  Serious: Yes (Other)
  Sender: FDA-Public Use
  Company Number: FR-MERCK KGAA-2037532

PATIENT
  Sex: Female

DRUGS (1)
  1. NOVOTHYROX [Suspect]
     Active Substance: LEVOTHYROXINE SODIUM
     Indication: POST PROCEDURAL HYPOTHYROIDISM
     Dates: start: 201707

REACTIONS (9)
  - Fatigue [None]
  - Blood thyroid stimulating hormone increased [None]
  - Gastrointestinal hypermotility [None]
  - Nervousness [None]
  - Hypothyroidism [None]
  - Blood pressure increased [None]
  - Muscular weakness [None]
  - Hyperthyroidism [None]
  - Insomnia [None]

NARRATIVE: CASE EVENT DATE: 2017
